FAERS Safety Report 13392148 (Version 1)
Quarter: 2017Q1

REPORT INFORMATION
  Report Type: Report from Study
  Country: BR (occurrence: BR)
  Receive Date: 20170331
  Receipt Date: 20170331
  Transmission Date: 20170429
  Serious: Yes (Other)
  Sender: FDA-Public Use
  Company Number: PHHY2017BR046661

PATIENT

DRUGS (1)
  1. EXELON PATCH [Suspect]
     Active Substance: RIVASTIGMINE
     Indication: MOVEMENT DISORDER
     Route: 065

REACTIONS (2)
  - Product use issue [Unknown]
  - Brain neoplasm [Unknown]
